FAERS Safety Report 6395258-6 (Version None)
Quarter: 2009Q4

REPORT INFORMATION
  Report Type: 
  Country: None (occurrence: None)
  Receive Date: 20091009
  Receipt Date: 20091001
  Transmission Date: 20100525
  Serious: Yes (Hospitalization)
  Sender: FDA-Public Use
  Company Number: ES-PFIZER INC-2009277439

PATIENT
  Age: 76 Year

DRUGS (5)
  1. PREVENCOR [Suspect]
     Indication: HYPERLIPIDAEMIA
     Dosage: 20 MG, 1X/DAY
     Route: 048
     Dates: start: 20070101
  2. PLAVIX [Suspect]
     Dosage: 75 MG, 1X/DAY
     Route: 048
     Dates: start: 20070101
  3. ARANESP [Suspect]
     Indication: ANAEMIA
     Dosage: 4 ML, WEEKLY
     Route: 058
     Dates: start: 20061101
  4. EZETROL [Suspect]
     Indication: HYPERLIPIDAEMIA
     Dosage: 10 MG, 1X/DAY
     Route: 048
     Dates: start: 20070101
  5. OMEPRAZOLE [Suspect]
     Dosage: UNK
     Route: 048

REACTIONS (1)
  - EOSINOPHILIA [None]
